FAERS Safety Report 16452033 (Version 1)
Quarter: 2019Q2

REPORT INFORMATION
  Report Type: Spontaneous
  Country: US (occurrence: US)
  Receive Date: 20190619
  Receipt Date: 20190619
  Transmission Date: 20190711
  Serious: No
  Sender: FDA-Public Use
  Company Number: US-ROCHE-2179319

PATIENT

DRUGS (3)
  1. ORENCIA [Concomitant]
     Active Substance: ABATACEPT
     Route: 065
     Dates: start: 20180205, end: 20180807
  2. XELJANZ [Concomitant]
     Active Substance: TOFACITINIB CITRATE
     Route: 048
  3. ACTEMRA [Suspect]
     Active Substance: TOCILIZUMAB
     Indication: PRODUCT USED FOR UNKNOWN INDICATION
     Route: 042
     Dates: start: 20170627, end: 20180205

REACTIONS (1)
  - Drug ineffective [Unknown]
